FAERS Safety Report 7075519-8 (Version None)
Quarter: 2010Q4

REPORT INFORMATION
  Report Type: 
  Country: None (occurrence: None)
  Receive Date: 20101030
  Receipt Date: 20101005
  Transmission Date: 20110411
  Serious: No
  Sender: FDA-Public Use
  Company Number: US-WYE-H18009010

PATIENT
  Age: 45 Year
  Sex: Male
  Weight: 95.34 kg

DRUGS (1)
  1. PRISTIQ [Suspect]
     Dosage: ^UNKNOWN, POSSIBLY 50 MG^
     Route: 048

REACTIONS (1)
  - PARAESTHESIA [None]
